FAERS Safety Report 19394736 (Version 1)
Quarter: 2021Q2

REPORT INFORMATION
  Report Type: Other
  Country: IT (occurrence: IT)
  Receive Date: 20210609
  Receipt Date: 20210609
  Transmission Date: 20210717
  Serious: Yes (Other)
  Sender: FDA-Public Use
  Company Number: IT-MACLEODS PHARMACEUTICALS US LTD-MAC2021031366

PATIENT

DRUGS (1)
  1. LEVOFLOXACIN. [Suspect]
     Active Substance: LEVOFLOXACIN
     Indication: INFECTION
     Dosage: 1 DOSAGE FORM, SINGLE, HARD CAPSULE
     Route: 048
     Dates: start: 20201001, end: 20201001

REACTIONS (2)
  - Dyspnoea [Recovering/Resolving]
  - Band sensation [Recovering/Resolving]

NARRATIVE: CASE EVENT DATE: 20201001
